FAERS Safety Report 8081053-9 (Version None)
Quarter: 2012Q1

REPORT INFORMATION
  Report Type: 
  Country: None (occurrence: None)
  Receive Date: 20120130
  Receipt Date: 20120120
  Transmission Date: 20120608
  Serious: Yes (Hospitalization)
  Sender: FDA-Public Use
  Company Number: US-ACTELION-A-US2012-59395

PATIENT

DRUGS (4)
  1. TRACLEER [Suspect]
     Indication: PULMONARY ARTERIAL HYPERTENSION
     Dosage: UNK
     Route: 048
     Dates: start: 20091218
  2. REVATIO [Concomitant]
  3. LASIX [Concomitant]
  4. COUMADIN [Concomitant]

REACTIONS (2)
  - PNEUMONIA [None]
  - PLEURAL EFFUSION [None]
